FAERS Safety Report 7000237-1 (Version None)
Quarter: 2010Q3

REPORT INFORMATION
  Report Type: 
  Country: None (occurrence: None)
  Receive Date: 20100920
  Receipt Date: 20071217
  Transmission Date: 20110219
  Serious: Yes (Hospitalization)
  Sender: FDA-Public Use
  Company Number: US-ASTRAZENECA-2006UW24486

PATIENT
  Sex: Male
  Weight: 122.5 kg

DRUGS (6)
  1. SEROQUEL [Suspect]
     Indication: DEPRESSION
     Route: 048
     Dates: start: 20010430
  2. ZYPREXA [Concomitant]
     Dosage: 5-20 MG
     Dates: start: 20010508
  3. ZYPREXA [Concomitant]
     Dates: start: 20060101
  4. TEGRETOL-XR [Concomitant]
     Dates: start: 20010508
  5. ZESTRIL [Concomitant]
     Dates: start: 20010522
  6. NOVOLIN 70/30 [Concomitant]
     Dosage: 70/30 100 U/ML INJECT 10 UNITS EVERY MORNING
     Dates: start: 20010605

REACTIONS (3)
  - DIABETES MELLITUS [None]
  - DIABETIC COMA [None]
  - PANCREATITIS [None]
